FAERS Safety Report 9307989 (Version 3)
Quarter: 2013Q3

REPORT INFORMATION
  Report Type: Spontaneous
  Country: IL (occurrence: IL)
  Receive Date: 20130524
  Receipt Date: 20130710
  Transmission Date: 20140515
  Serious: Yes (Other)
  Sender: FDA-Public Use
  Company Number: IL-ROCHE-1228043

PATIENT
  Age: 82 Year
  Sex: Female

DRUGS (1)
  1. MABTHERA [Suspect]
     Indication: RHEUMATOID ARTHRITIS
     Route: 065
     Dates: end: 201203

REACTIONS (3)
  - Anaemia [Unknown]
  - Constipation [Unknown]
  - Adenocarcinoma of colon [Unknown]
